FAERS Safety Report 10354036 (Version 1)
Quarter: 2014Q3

REPORT INFORMATION
  Report Type: Spontaneous
  Country: US (occurrence: US)
  Receive Date: 20140731
  Receipt Date: 20140731
  Transmission Date: 20150326
  Serious: No
  Sender: FDA-Public Use
  Company Number: US-BAYER-2014-110164

PATIENT
  Age: 4 Year
  Sex: Female

DRUGS (2)
  1. CIPRO [Suspect]
     Active Substance: CIPROFLOXACIN HYDROCHLORIDE
     Indication: INFECTION
     Dosage: 3 ML, UNK
     Dates: start: 201401
  2. CIPRO [Suspect]
     Active Substance: CIPROFLOXACIN HYDROCHLORIDE
     Indication: INFECTION
     Dosage: 3 ML, UNK
     Dates: start: 201402

REACTIONS (2)
  - Wrong technique in drug usage process [None]
  - Product quality issue [None]

NARRATIVE: CASE EVENT DATE: 20140713
